FAERS Safety Report 7654658-4 (Version None)
Quarter: 2011Q3

REPORT INFORMATION
  Report Type: 
  Country: None (occurrence: None)
  Receive Date: 20110804
  Receipt Date: 20110801
  Transmission Date: 20111222
  Serious: Yes (Death, Hospitalization)
  Sender: FDA-Public Use
  Company Number: US-BRISTOL-MYERS SQUIBB COMPANY-15939580

PATIENT
  Age: 71 Year
  Sex: Male
  Weight: 77 kg

DRUGS (2)
  1. PACLITAXEL [Suspect]
     Indication: ADENOCARCINOMA
     Dosage: 152MG
     Route: 042
     Dates: start: 20110617, end: 20110712
  2. MORPHINE [Concomitant]

REACTIONS (7)
  - HYPOTENSION [None]
  - NEUTROPHIL COUNT DECREASED [None]
  - WHITE BLOOD CELL COUNT DECREASED [None]
  - HYPOPHOSPHATAEMIA [None]
  - PLATELET COUNT DECREASED [None]
  - DEATH [None]
  - ILEUS [None]
